FAERS Safety Report 8971026 (Version 1)
Quarter: 2012Q4

REPORT INFORMATION
  Report Type: 
  Country: US (occurrence: US)
  Receive Date: 20121218
  Receipt Date: 20121218
  Transmission Date: 20130627
  Serious: No
  Sender: FDA-Public Use
  Company Number: US-BRISTOL-MYERS SQUIBB COMPANY-16471724

PATIENT
  Age: 41 Year
  Sex: Female
  Weight: 77.1 kg

DRUGS (1)
  1. ABILIFY [Suspect]
     Indication: MAJOR DEPRESSION
     Dosage: Two days ago started with 15 mg once daily

REACTIONS (3)
  - Poor quality sleep [Not Recovered/Not Resolved]
  - Crying [Unknown]
  - Vision blurred [Not Recovered/Not Resolved]
